FAERS Safety Report 10727524 (Version 4)
Quarter: 2015Q1

REPORT INFORMATION
  Report Type: Spontaneous
  Country: DK (occurrence: DK)
  Receive Date: 20150121
  Receipt Date: 20150211
  Transmission Date: 20150721
  Serious: Yes (Death, Life-Threatening)
  Sender: FDA-Public Use
  Company Number: DK-B.I. PHARMACEUTICALS,INC./RIDGEFIELD-2015-BI-02805DB

PATIENT
  Age: 85 Year
  Sex: Female

DRUGS (6)
  1. PRADAXA [Suspect]
     Active Substance: DABIGATRAN ETEXILATE MESYLATE
     Indication: ATRIAL FIBRILLATION
     Dosage: 220 MG
     Route: 048
     Dates: start: 20141015
  2. LANSOPRAZOL ^ACTAVIS^ [Concomitant]
     Indication: OESOPHAGITIS
     Route: 065
     Dates: start: 20130411, end: 20150115
  3. CONTALGIN [Concomitant]
     Active Substance: MORPHINE SULFATE
     Indication: PAIN
     Route: 065
     Dates: start: 20150105, end: 20150115
  4. SIMVASTATIN. [Concomitant]
     Active Substance: SIMVASTATIN
     Indication: HYPERCHOLESTEROLAEMIA
     Route: 065
     Dates: start: 20121022, end: 20150115
  5. COLCHICIN [Concomitant]
     Active Substance: COLCHICINE
     Indication: GOUTY ARTHRITIS
     Route: 065
     Dates: start: 20140630, end: 20150115
  6. FURIX [Concomitant]
     Active Substance: FUROSEMIDE
     Indication: CARDIAC DISORDER
     Route: 065
     Dates: start: 20141022, end: 20150115

REACTIONS (9)
  - Anuria [Not Recovered/Not Resolved]
  - Coagulopathy [Fatal]
  - Respiratory failure [Not Recovered/Not Resolved]
  - Injection site haemorrhage [Not Recovered/Not Resolved]
  - Abdominal pain [Not Recovered/Not Resolved]
  - Multi-organ failure [Fatal]
  - Hepatic failure [Fatal]
  - Cardiac failure [Fatal]
  - Circulatory collapse [Not Recovered/Not Resolved]

NARRATIVE: CASE EVENT DATE: 20150114
